FAERS Safety Report 17246022 (Version 1)
Quarter: 2020Q1

REPORT INFORMATION
  Report Type: Report from Study
  Country: CO (occurrence: CO)
  Receive Date: 20200108
  Receipt Date: 20200108
  Transmission Date: 20200409
  Serious: Yes (Other)
  Sender: FDA-Public Use
  Company Number: CO-ROCHE-2455478

PATIENT
  Sex: Female

DRUGS (1)
  1. TRASTUZUMAB. [Suspect]
     Active Substance: TRASTUZUMAB
     Indication: PRODUCT USED FOR UNKNOWN INDICATION
     Route: 065

REACTIONS (7)
  - Fear [Unknown]
  - Poisoning [Unknown]
  - Malaise [Unknown]
  - Blood pressure increased [Unknown]
  - Erythema [Unknown]
  - Nervousness [Unknown]
  - Dyspnoea [Unknown]
